FAERS Safety Report 19483373 (Version 2)
Quarter: 2021Q3

REPORT INFORMATION
  Report Type: Spontaneous
  Country: FR (occurrence: FR)
  Receive Date: 20210701
  Receipt Date: 20210706
  Transmission Date: 20211014
  Serious: Yes (Hospitalization)
  Sender: FDA-Public Use
  Company Number: FR-PFIZER INC-2021751867

PATIENT
  Age: 70 Year
  Sex: Female
  Weight: 68 kg

DRUGS (6)
  1. TAZOCILLINE [Suspect]
     Active Substance: PIPERACILLIN SODIUM\TAZOBACTAM SODIUM
     Indication: ANTIBIOTIC PROPHYLAXIS
     Dosage: 4 G, FOUR TIMES PER DAY
     Route: 042
     Dates: start: 20210529, end: 20210531
  2. ATOVAQUONE. [Suspect]
     Active Substance: ATOVAQUONE
     Indication: MALARIA PROPHYLAXIS
     Dosage: 750 MG, TWO TIMES PER DAY
     Route: 048
     Dates: start: 20210519, end: 20210602
  3. ZARZIO [Suspect]
     Active Substance: FILGRASTIM
     Indication: NEUTROPENIA
     Dosage: 480 UG
     Route: 042
     Dates: start: 20210528, end: 20210602
  4. LANSOPRAZOLE. [Suspect]
     Active Substance: LANSOPRAZOLE
     Indication: GASTROINTESTINAL DISORDER PROPHYLAXIS
     Dosage: 30 MG, 1X/DAY
     Route: 048
     Dates: start: 20210520
  5. DIOSMECTITE [Suspect]
     Active Substance: MONTMORILLONITE
     Indication: PROPHYLAXIS AGAINST DIARRHOEA
     Dosage: 1 PACKET / 6 HOURS
     Route: 048
     Dates: start: 20210527, end: 20210527
  6. ONDANSETRON [Suspect]
     Active Substance: ONDANSETRON
     Indication: NAUSEA
     Dosage: 8 MG, 2X/DAY
     Route: 042
     Dates: start: 20210519, end: 20210604

REACTIONS (1)
  - Rash morbilliform [Recovering/Resolving]

NARRATIVE: CASE EVENT DATE: 20210530
